FAERS Safety Report 12535567 (Version 1)
Quarter: 2016Q3

REPORT INFORMATION
  Report Type: Spontaneous
  Country: US (occurrence: None)
  Receive Date: 20160706
  Receipt Date: 20160706
  Transmission Date: 20161109
  Serious: Yes (Life-Threatening, Hospitalization, Disabling, Other)
  Sender: FDA-Public Use
  Company Number: None

PATIENT
  Age: 64 Year
  Sex: Female
  Weight: 75.75 kg

DRUGS (7)
  1. ZOLOFT [Concomitant]
     Active Substance: SERTRALINE HYDROCHLORIDE
  2. CHLOZAPAN [Concomitant]
  3. LISINOPRIL, 20 MG [Suspect]
     Active Substance: LISINOPRIL
     Indication: HYPERTENSION
     Route: 048
     Dates: start: 20100527
  4. MULTI VITAMIN [Concomitant]
     Active Substance: VITAMINS
  5. EYE DROPS [Concomitant]
     Active Substance: TETRAHYDROZOLINE HYDROCHLORIDE
  6. METFORMIN [Concomitant]
     Active Substance: METFORMIN HYDROCHLORIDE
  7. SIMVASTATIN. [Concomitant]
     Active Substance: SIMVASTATIN

REACTIONS (23)
  - Muscle spasms [None]
  - Insomnia [None]
  - Diabetic coma [None]
  - Thinking abnormal [None]
  - Dehydration [None]
  - Aphasia [None]
  - Hypertonic bladder [None]
  - Chills [None]
  - Fatigue [None]
  - Dialysis [None]
  - Pancreatitis [None]
  - Balance disorder [None]
  - Anxiety [None]
  - Road traffic accident [None]
  - Dizziness [None]
  - Nasopharyngitis [None]
  - Dysgraphia [None]
  - Quality of life decreased [None]
  - Dyspepsia [None]
  - Speech disorder [None]
  - Renal failure [None]
  - Disturbance in attention [None]
  - Feeling drunk [None]

NARRATIVE: CASE EVENT DATE: 20100527
